FAERS Safety Report 24193645 (Version 1)
Quarter: 2024Q3

REPORT INFORMATION
  Report Type: Spontaneous
  Country: ES (occurrence: ES)
  Receive Date: 20240809
  Receipt Date: 20240809
  Transmission Date: 20241016
  Serious: Yes (Hospitalization, Other)
  Sender: VKT PHARMA PRIVATE LIMITED
  Company Number: ES-VKT-000579

PATIENT
  Age: 65 Year
  Sex: Male

DRUGS (2)
  1. PHENYTOIN [Suspect]
     Active Substance: PHENYTOIN
     Indication: Status epilepticus
     Route: 065
  2. LEVETIRACETAM [Suspect]
     Active Substance: LEVETIRACETAM
     Indication: Status epilepticus
     Route: 065

REACTIONS (8)
  - Disease recurrence [Unknown]
  - Partial seizures with secondary generalisation [Unknown]
  - Aphasia [Unknown]
  - Hemiparesis [Unknown]
  - Focal dyscognitive seizures [Recovered/Resolved]
  - Treatment noncompliance [Unknown]
  - Partial seizures [Recovered/Resolved]
  - Status epilepticus [Unknown]
